FAERS Safety Report 21022259 (Version 1)
Quarter: 2022Q2

REPORT INFORMATION
  Report Type: Spontaneous
  Country: US (occurrence: None)
  Receive Date: 20220628
  Receipt Date: 20220628
  Transmission Date: 20220721
  Serious: Yes (Hospitalization)
  Sender: FDA-Public Use
  Company Number: None

PATIENT
  Age: 60 Year
  Sex: Female
  Weight: 45 kg

DRUGS (5)
  1. XEOMIN [Suspect]
     Active Substance: INCOBOTULINUMTOXINA
     Indication: Migraine
     Dosage: OTHER QUANTITY : 140 INJECTION(S);?OTHER ROUTE : INJECTED INTO THE BACK OF THE SKULL;?
     Route: 050
     Dates: start: 20220510, end: 20220510
  2. PROZAC [Concomitant]
     Active Substance: FLUOXETINE HYDROCHLORIDE
  3. IMITREX [Concomitant]
     Active Substance: SUMATRIPTAN SUCCINATE
  4. TOPAMAX [Concomitant]
     Active Substance: TOPIRAMATE
  5. VITAMINS [Concomitant]
     Active Substance: VITAMINS

REACTIONS (4)
  - Diplopia [None]
  - Muscular weakness [None]
  - Dysphagia [None]
  - Mastication disorder [None]

NARRATIVE: CASE EVENT DATE: 20220510
